FAERS Safety Report 7361023-6 (Version None)
Quarter: 2011Q1

REPORT INFORMATION
  Report Type: 
  Country: None (occurrence: None)
  Receive Date: 20110318
  Receipt Date: 20110316
  Transmission Date: 20110831
  Serious: Yes (Death, Hospitalization)
  Sender: FDA-Public Use
  Company Number: BE-ROCHE-725668

PATIENT
  Sex: Male
  Weight: 93 kg

DRUGS (3)
  1. CAPECITABINE [Suspect]
     Indication: RECTAL CANCER
     Dosage: SCHEDULE: 825 MG/M2, BID D I -33 W/O WEEKENDS + OPTIONAL BOOST.
     Route: 048
     Dates: start: 20100727, end: 20100827
  2. ULTRA-K [Concomitant]
     Route: 048
     Dates: start: 20100830
  3. OXALIPLATIN [Suspect]
     Indication: RECTAL CANCER
     Dosage: SCHEDULE: 50 MG/M2, ON DAY 1,6, 15, 22 AND 29.
     Route: 042
     Dates: start: 20100727, end: 20100827

REACTIONS (3)
  - DIARRHOEA [None]
  - PROCTALGIA [None]
  - DEATH [None]
